FAERS Safety Report 16025930 (Version 1)
Quarter: 2019Q1

REPORT INFORMATION
  Report Type: Report from Study
  Country: FR (occurrence: FR)
  Receive Date: 20190302
  Receipt Date: 20190302
  Transmission Date: 20190418
  Serious: Yes (Death, Other)
  Sender: FDA-Public Use
  Company Number: FR-ACCORD-110039

PATIENT

DRUGS (1)
  1. OXALIPLATIN. [Suspect]
     Active Substance: OXALIPLATIN
     Indication: METASTASES TO PERITONEUM
     Dosage: REPEATED EVERY 6 WEEKS AT 37 DEGREE CELCIUS AND 12 MMHG
     Route: 033

REACTIONS (2)
  - Pulmonary toxicity [Fatal]
  - Off label use [Unknown]
